FAERS Safety Report 12441534 (Version 1)
Quarter: 2016Q2

REPORT INFORMATION
  Report Type: Spontaneous
  Country: US (occurrence: None)
  Receive Date: 20160606
  Receipt Date: 20160606
  Transmission Date: 20160815
  Serious: No
  Sender: FDA-Public Use
  Company Number: None

PATIENT
  Sex: Male

DRUGS (1)
  1. ZYTIGA [Suspect]
     Active Substance: ABIRATERONE ACETATE
     Indication: RECTOSIGMOID CANCER
     Route: 048
     Dates: start: 20160410

REACTIONS (1)
  - Haematuria [None]

NARRATIVE: CASE EVENT DATE: 2016
